FAERS Safety Report 5842578-7 (Version None)
Quarter: 2008Q3

REPORT INFORMATION
  Report Type: 
  Country: None (occurrence: None)
  Receive Date: 20080812
  Receipt Date: 20080731
  Transmission Date: 20090109
  Serious: Yes (Other)
  Sender: FDA-Public Use
  Company Number: US-PFIZER INC-2008065066

PATIENT
  Sex: Male
  Weight: 98 kg

DRUGS (7)
  1. CHANTIX [Suspect]
     Indication: SMOKING CESSATION THERAPY
     Route: 048
  2. TOPAMAX [Concomitant]
  3. KEPPRA [Concomitant]
  4. CRESTOR [Concomitant]
  5. CELEXA [Concomitant]
  6. ACETYLSALICYLIC ACID SRT [Concomitant]
  7. DRUG, UNSPECIFIED [Concomitant]

REACTIONS (4)
  - ANGER [None]
  - CONDITION AGGRAVATED [None]
  - CONVULSION [None]
  - DEPRESSION [None]
